FAERS Safety Report 17207949 (Version 2)
Quarter: 2021Q4

REPORT INFORMATION
  Report Type: Report from Study
  Country: DE (occurrence: DE)
  Receive Date: 20191227
  Receipt Date: 20211124
  Transmission Date: 20220303
  Serious: Yes (Hospitalization)
  Sender: FDA-Public Use
  Company Number: DE-ACCORD-153856

PATIENT
  Sex: Female
  Weight: 70.2 kg

DRUGS (6)
  1. PEGFILGRASTIM [Suspect]
     Active Substance: PEGFILGRASTIM
     Indication: Product used for unknown indication
     Dosage: 6 MILLIGRAM, CYCLE
     Dates: start: 20190816, end: 20190816
  2. PEGFILGRASTIM [Suspect]
     Active Substance: PEGFILGRASTIM
     Dosage: 6 MILLIGRAM, CYCLE
     Dates: start: 20190726, end: 20190726
  3. PEGFILGRASTIM [Suspect]
     Active Substance: PEGFILGRASTIM
     Dosage: 6 MILLIGRAM, CYCLE
     Dates: start: 20190705, end: 20190705
  4. DOCETAXEL [Concomitant]
     Active Substance: DOCETAXEL
     Indication: Breast cancer
     Dosage: 136.5 MILLIGRAM, QD
     Route: 042
     Dates: start: 20190815, end: 20190815
  5. TRASTUZUMAB [Concomitant]
     Active Substance: TRASTUZUMAB
     Indication: Breast cancer
     Dosage: 426 MILLIGRAM, QD
     Route: 042
     Dates: start: 20190815, end: 20190815
  6. CYCLOPHOSPHAMIDE [Concomitant]
     Active Substance: CYCLOPHOSPHAMIDE
     Indication: Breast cancer
     Dosage: 910 MILLIGRAM, QD
     Route: 042
     Dates: start: 20190815, end: 20190815

REACTIONS (5)
  - Ureteritis [Recovered/Resolved]
  - Constipation [Recovered/Resolved]
  - Ureterolithiasis [Recovered/Resolved]
  - Abdominal pain [Recovered/Resolved]
  - Kidney congestion [Recovered/Resolved]

NARRATIVE: CASE EVENT DATE: 20190819
